FAERS Safety Report 4724246-8 (Version None)
Quarter: 2005Q3

REPORT INFORMATION
  Report Type: 
  Country: None (occurrence: None)
  Receive Date: 20050721
  Receipt Date: 20050718
  Transmission Date: 20060218
  Serious: Yes (Hospitalization)
  Sender: FDA-Public Use
  Company Number: GBWYE837818JUL05

PATIENT
  Age: 46 Year
  Sex: Male

DRUGS (5)
  1. TAZOCIN [Suspect]
     Indication: WOUND INFECTION
     Dosage: INTRAVENOUS
     Route: 042
     Dates: start: 20050610, end: 20050621
  2. VANCOMYCIN [Suspect]
     Indication: WOUND INFECTION
     Dosage: 1 G 2X PER 1 DAY INTRAVENOUS
     Route: 042
     Dates: start: 20050610, end: 20050621
  3. RANITIDINE [Concomitant]
  4. CEFUROXIME [Concomitant]
  5. CLINDAMYCIN HCL [Concomitant]

REACTIONS (4)
  - CHILLS [None]
  - FLUSHING [None]
  - NEUTROPENIA [None]
  - PARAESTHESIA [None]
